FAERS Safety Report 24757551 (Version 2)
Quarter: 2025Q1

REPORT INFORMATION
  Report Type: Spontaneous
  Country: GB (occurrence: GB)
  Receive Date: 20241220
  Receipt Date: 20250103
  Transmission Date: 20250409
  Serious: Yes (Hospitalization, Other)
  Sender: AUROBINDO
  Company Number: GB-CHIESI-2024CHF07707

PATIENT
  Age: 74 Year
  Sex: Female

DRUGS (2)
  1. DIGOXIN [Interacting]
     Active Substance: DIGOXIN
     Indication: Cardiac disorder
     Route: 065
  2. BECLOMETHASONE\FORMOTEROL [Interacting]
     Active Substance: BECLOMETHASONE\FORMOTEROL
     Indication: Product used for unknown indication
     Dosage: 8 DOSAGE FORM, ONCE A DAY (4 DOSAGE FORM, BID)

REACTIONS (9)
  - Mental impairment [Recovered/Resolved]
  - Drug interaction [Recovered/Resolved]
  - Lower respiratory tract infection [Unknown]
  - Heart rate increased [Recovered/Resolved]
  - Impaired driving ability [Recovered/Resolved]
  - Dizziness [Recovered/Resolved]
  - Off label use [Recovered/Resolved]
  - Product dose omission issue [Unknown]
  - Malaise [Unknown]
